FAERS Safety Report 18928854 (Version 1)
Quarter: 2021Q1

REPORT INFORMATION
  Report Type: Spontaneous
  Country: CO (occurrence: CO)
  Receive Date: 20210223
  Receipt Date: 20210223
  Transmission Date: 20210420
  Serious: Yes (Hospitalization)
  Sender: FDA-Public Use
  Company Number: CO-COEPTIS PHARMACEUTICALS, INC.-COE-2021-000014

PATIENT
  Age: 16 Year
  Sex: Male

DRUGS (1)
  1. AMLODIPINE [Suspect]
     Active Substance: AMLODIPINE BESYLATE
     Dosage: SIX TABLETS
     Route: 048

REACTIONS (2)
  - Toxicity to various agents [Recovering/Resolving]
  - Non-cardiogenic pulmonary oedema [Recovering/Resolving]
